FAERS Safety Report 8168800-2 (Version None)
Quarter: 2012Q1

REPORT INFORMATION
  Report Type: 
  Country: None (occurrence: None)
  Receive Date: 20120227
  Receipt Date: 20120222
  Transmission Date: 20120608
  Serious: Yes (Death)
  Sender: FDA-Public Use
  Company Number: ZA-PFIZER INC-2012038928

PATIENT
  Age: 63 Year
  Sex: Female

DRUGS (1)
  1. SUTENT [Suspect]
     Indication: RENAL CELL CARCINOMA
     Dosage: 50 MG 1X DAILY , CYCLIC (4 WEEKS ON, 2 WEEKS OFF)
     Route: 048
     Dates: start: 20100506, end: 20100101

REACTIONS (7)
  - NAUSEA [None]
  - INCORRECT DOSE ADMINISTERED [None]
  - FATIGUE [None]
  - ARTHRALGIA [None]
  - DEATH [None]
  - SKIN EXFOLIATION [None]
  - DYSGEUSIA [None]
